FAERS Safety Report 5120084-5 (Version None)
Quarter: 2006Q3

REPORT INFORMATION
  Report Type: 
  Country: None (occurrence: None)
  Receive Date: 20060928
  Receipt Date: 20060915
  Transmission Date: 20061208
  Serious: Yes (Death)
  Sender: FDA-Public Use
  Company Number: 2006103431

PATIENT
  Age: 59 Year
  Sex: Male
  Weight: 87 kg

DRUGS (1)
  1. SUTENT [Suspect]
     Indication: RENAL CELL CARCINOMA STAGE UNSPECIFIED
     Dosage: 50 MG (50 MG, DAILY), ORAL
     Route: 048
     Dates: start: 20060110, end: 20060820

REACTIONS (3)
  - BRAIN OEDEMA [None]
  - SUBARACHNOID HAEMORRHAGE [None]
  - SUDDEN DEATH [None]
